FAERS Safety Report 6007412-3 (Version None)
Quarter: 2008Q4

REPORT INFORMATION
  Report Type: 
  Country: None (occurrence: None)
  Receive Date: 20081217
  Receipt Date: 20080411
  Transmission Date: 20090506
  Serious: No
  Sender: FDA-Public Use
  Company Number: US-ASTRAZENECA-2008UW07550

PATIENT
  Age: 55 Year
  Sex: Female

DRUGS (3)
  1. CRESTOR [Suspect]
     Indication: HYPERCHOLESTEROLAEMIA
     Route: 048
     Dates: start: 20080301
  2. ALPHAGAN [Concomitant]
  3. CYMBALTA [Concomitant]

REACTIONS (4)
  - ASTHENOPIA [None]
  - FACIAL PAIN [None]
  - MYALGIA [None]
  - NAUSEA [None]
